FAERS Safety Report 13085404 (Version 8)
Quarter: 2017Q3

REPORT INFORMATION
  Report Type: Spontaneous
  Country: KR (occurrence: KR)
  Receive Date: 20170104
  Receipt Date: 20170919
  Transmission Date: 20171127
  Serious: Yes (Death, Other)
  Sender: FDA-Public Use
  Company Number: KR-009507513-1612KOR012308

PATIENT
  Age: 58 Year
  Sex: Male
  Weight: 67 kg

DRUGS (18)
  1. EMEND (FOSAPREPITANT DIMEGLUMINE) [Suspect]
     Active Substance: FOSAPREPITANT DIMEGLUMINE
     Indication: PROPHYLAXIS OF NAUSEA AND VOMITING
     Dosage: 150 MG, ONCE
     Route: 042
     Dates: start: 20161216, end: 20161216
  2. MAXIPIME [Concomitant]
     Active Substance: CEFEPIME HYDROCHLORIDE
     Indication: PYREXIA
     Dosage: 2 G, TID
     Route: 042
     Dates: start: 20161215, end: 20161222
  3. SEPTRIN [Concomitant]
     Active Substance: SULFAMETHOXAZOLE\TRIMETHOPRIM
     Indication: INFECTION PROPHYLAXIS
     Dosage: 1 TABLET, BID
     Route: 048
     Dates: start: 20161216, end: 20161222
  4. MABTHERA [Concomitant]
     Active Substance: RITUXIMAB
     Indication: DIFFUSE LARGE B-CELL LYMPHOMA
     Dosage: 637 MG, ONCE, CYCLE 1
     Route: 042
     Dates: start: 20161216, end: 20161216
  5. MULEX [Concomitant]
     Indication: BACK PAIN
     Dosage: 1 TABLET, TID
     Route: 048
     Dates: start: 20161208, end: 20161230
  6. METHOTREXATE. [Concomitant]
     Active Substance: METHOTREXATE
     Dosage: UNK, CYCLE 1
     Route: 042
     Dates: start: 20161216
  7. LYRICA [Concomitant]
     Active Substance: PREGABALIN
     Indication: BACK PAIN
     Dosage: 75 MG, BID
     Route: 048
     Dates: start: 20161208, end: 20161227
  8. ADRIAMYCIN [Concomitant]
     Active Substance: DOXORUBICIN HYDROCHLORIDE
     Indication: DIFFUSE LARGE B-CELL LYMPHOMA
     Dosage: 85 MG, ONCE, CYCLE 1
     Route: 042
     Dates: start: 20161216, end: 20161216
  9. ENDOXAN [Concomitant]
     Active Substance: CYCLOPHOSPHAMIDE
     Indication: DIFFUSE LARGE B-CELL LYMPHOMA
     Dosage: 1274 MG, ONCE, CYCLE 1
     Route: 042
     Dates: start: 20161216, end: 20161216
  10. VINCRISTINE SULFATE. [Concomitant]
     Active Substance: VINCRISTINE SULFATE
     Indication: DIFFUSE LARGE B-CELL LYMPHOMA
     Dosage: 2 MG, ONCE, CYCLE 1; STRENGTH: 1 MG/ML 1ML
     Route: 042
     Dates: start: 20161216, end: 20161216
  11. LEGALON [Concomitant]
     Active Substance: MILK THISTLE
     Indication: LIVER FUNCTION TEST INCREASED
     Dosage: 140 MG, TID
     Route: 048
     Dates: start: 20161206, end: 20161229
  12. RIBOFLAVIN (+) THIAMINE (+) URSODIOL [Concomitant]
     Indication: LIVER FUNCTION TEST INCREASED
     Dosage: 1 TABLET, TID
     Route: 048
     Dates: start: 20161206, end: 20161229
  13. ZYLORIC [Concomitant]
     Active Substance: ALLOPURINOL
     Indication: PROPHYLAXIS
     Dosage: 100 MG, TID
     Route: 048
     Dates: start: 20161215, end: 20161227
  14. OXYNORM [Concomitant]
     Active Substance: OXYCODONE HYDROCHLORIDE
     Indication: BACK PAIN
     Dosage: 4 AMP, QD; STRENGTH: 200 MG /20 ML
     Route: 042
     Dates: start: 20161216, end: 20161228
  15. SOLONDO [Concomitant]
     Active Substance: PREDNISOLONE
     Indication: PROPHYLAXIS OF NAUSEA AND VOMITING
     Dosage: 40 MG, QD
     Route: 048
     Dates: start: 20161216, end: 20161220
  16. SOLONDO [Concomitant]
     Active Substance: PREDNISOLONE
     Dosage: 30 MG, BID
     Route: 048
     Dates: start: 20161216, end: 20161220
  17. ALOXI [Concomitant]
     Active Substance: PALONOSETRON HYDROCHLORIDE
     Indication: PROPHYLAXIS OF NAUSEA AND VOMITING
     Dosage: 0.25 MG, ONCE
     Route: 042
     Dates: start: 20161216, end: 20161216
  18. CARDIOXANE [Concomitant]
     Active Substance: DEXRAZOXANE HYDROCHLORIDE
     Indication: PROPHYLAXIS
     Dosage: 850 MG, ONCE
     Route: 042
     Dates: start: 20161216, end: 20161216

REACTIONS (9)
  - Neutrophil count decreased [Not Recovered/Not Resolved]
  - Hypertension [Not Recovered/Not Resolved]
  - Platelet count decreased [Not Recovered/Not Resolved]
  - Pneumonia fungal [Fatal]
  - Upper respiratory tract infection [Not Recovered/Not Resolved]
  - Nausea [Recovered/Resolved]
  - Infusion related reaction [Recovered/Resolved]
  - Constipation [Recovered/Resolved]
  - Oral candidiasis [Not Recovered/Not Resolved]

NARRATIVE: CASE EVENT DATE: 20161216
